FAERS Safety Report 5390726-8 (Version None)
Quarter: 2007Q3

REPORT INFORMATION
  Report Type: 
  Country: None (occurrence: None)
  Receive Date: 20070716
  Receipt Date: 20060309
  Transmission Date: 20080115
  Serious: Yes (Hospitalization)
  Sender: FDA-Public Use
  Company Number: MPS1-10504

PATIENT
  Sex: 0

DRUGS (1)
  1. ALDURAZYME [Suspect]
     Indication: MUCOPOLYSACCHARIDOSIS I

REACTIONS (3)
  - CENTRAL LINE INFECTION [None]
  - LUNG DISORDER [None]
  - STREPTOCOCCAL INFECTION [None]
